FAERS Safety Report 9469102 (Version 1)
Quarter: 2013Q3

REPORT INFORMATION
  Report Type: Spontaneous
  Country: GB (occurrence: GB)
  Receive Date: 20130821
  Receipt Date: 20130821
  Transmission Date: 20140515
  Serious: Yes (Hospitalization, Other)
  Sender: FDA-Public Use
  Company Number: GB-WATSON-2013-14386

PATIENT
  Age: 76 Year
  Sex: Female

DRUGS (4)
  1. WARFARIN (UNKNOWN) [Suspect]
     Indication: ATRIAL FIBRILLATION
     Dosage: UNK
     Route: 065
  2. CLARITHROMYCIN (UNKNOWN) [Interacting]
     Indication: PNEUMONIA
     Dosage: UNK
     Route: 048
  3. AMOXICILLIN (UNKNOWN) [Interacting]
     Indication: PNEUMONIA
     Dosage: UNK
     Route: 048
  4. DIGOXIN [Concomitant]
     Indication: ATRIAL FIBRILLATION
     Dosage: UNK
     Route: 065

REACTIONS (3)
  - Large intestinal obstruction [Recovered/Resolved with Sequelae]
  - Abdominal wall haematoma [Recovered/Resolved with Sequelae]
  - Potentiating drug interaction [Unknown]
